FAERS Safety Report 5113435-9 (Version None)
Quarter: 2006Q3

REPORT INFORMATION
  Report Type: 
  Country: None (occurrence: None)
  Receive Date: 20060921
  Receipt Date: 20060921
  Transmission Date: 20061208
  Serious: Yes (Hospitalization)
  Sender: FDA-Public Use
  Company Number: None

PATIENT
  Age: 59 Year
  Sex: Male
  Weight: 172 kg

DRUGS (2)
  1. LISINOPRIL [Suspect]
     Indication: HYPERTENSION
     Dosage: 40 MG BID PO
     Route: 048
  2. POTASSIUM 8 MEQ [Suspect]
     Indication: HYPOKALAEMIA
     Dosage: 24 MEQ TID PO
     Route: 048

REACTIONS (14)
  - ACIDOSIS [None]
  - CARDIAC FAILURE CONGESTIVE [None]
  - CLOSTRIDIAL INFECTION [None]
  - DIARRHOEA [None]
  - DIZZINESS [None]
  - ELECTROCARDIOGRAM T WAVE AMPLITUDE INCREASED [None]
  - GASTROENTERITIS [None]
  - HYPERKALAEMIA [None]
  - HYPERTENSION [None]
  - INCORRECT DOSE ADMINISTERED [None]
  - NAUSEA [None]
  - RENAL FAILURE ACUTE [None]
  - URINARY INCONTINENCE [None]
  - VOMITING [None]
